FAERS Safety Report 5023935-8 (Version None)
Quarter: 2006Q2

REPORT INFORMATION
  Report Type: 
  Country: None (occurrence: None)
  Receive Date: 20060426
  Receipt Date: 20060223
  Transmission Date: 20061013
  Serious: Yes (Other)
  Sender: FDA-Public Use
  Company Number: 2006027800

PATIENT
  Age: 76 Year
  Sex: Male

DRUGS (8)
  1. LYRICA [Suspect]
     Indication: NEURALGIA
     Dosage: 150 MG (75 MG, 2 IN 1 D), ORAL
     Route: 048
     Dates: start: 20051101
  2. WARFARIN (WARFARIN) [Concomitant]
  3. DILTIAZEM [Concomitant]
  4. POTASSIUM (POTASSIUM) [Concomitant]
  5. LIPITOR [Concomitant]
  6. TERAZOSIN (TERAZOSIN) [Concomitant]
  7. RANITIDINE [Concomitant]
  8. OXYCONTIN [Concomitant]

REACTIONS (1)
  - INTERNATIONAL NORMALISED RATIO DECREASED [None]
